FAERS Safety Report 22376391 (Version 2)
Quarter: 2023Q2

REPORT INFORMATION
  Report Type: Spontaneous
  Country: US (occurrence: US)
  Receive Date: 20230527
  Receipt Date: 20230527
  Transmission Date: 20230721
  Serious: No
  Sender: FDA-Public Use
  Company Number: US-Dermavant-000526

PATIENT
  Age: 57 Year
  Sex: Male

DRUGS (1)
  1. TAPINAROF [Suspect]
     Active Substance: TAPINAROF
     Dosage: AREA OF APPLICATION: ^HEAD, CHEST PATCHES (APPROXIMATELY 2-INCH SQUARE EACH)^
     Route: 061
     Dates: start: 20230109, end: 20230115

REACTIONS (1)
  - Pruritus [Not Recovered/Not Resolved]
